FAERS Safety Report 6318488-8 (Version None)
Quarter: 2009Q3

REPORT INFORMATION
  Report Type: 
  Country: None (occurrence: None)
  Receive Date: 20090821
  Receipt Date: 20090818
  Transmission Date: 20100115
  Serious: Yes (Hospitalization)
  Sender: FDA-Public Use
  Company Number: FR-BRISTOL-MYERS SQUIBB COMPANY-14745368

PATIENT
  Age: 42 Year
  Sex: Female
  Weight: 60 kg

DRUGS (9)
  1. IXABEPILONE [Suspect]
     Indication: BREAST CANCER
     Route: 042
     Dates: start: 20090724
  2. CYCLOPHOSPHAMIDE [Suspect]
     Indication: BREAST CANCER
     Route: 042
     Dates: start: 20090515, end: 20090626
  3. EPIRUBICIN [Suspect]
     Indication: BREAST CANCER
     Dosage: 522MG
     Route: 042
     Dates: start: 20090515, end: 20090626
  4. FLUOROURACIL [Suspect]
     Indication: BREAST CANCER
     Route: 042
     Dates: start: 20090515, end: 20090626
  5. MYOLASTAN [Concomitant]
     Indication: MYALGIA
     Route: 048
  6. EFFERALGAN CODEINE [Concomitant]
     Indication: PAIN
     Route: 048
  7. TRANXENE [Concomitant]
     Indication: ANXIETY
     Route: 048
  8. GAVISCON [Concomitant]
     Indication: PROPHYLAXIS
     Route: 048
  9. MOPRAL [Concomitant]
     Indication: PROPHYLAXIS
     Route: 048

REACTIONS (2)
  - GENERAL PHYSICAL HEALTH DETERIORATION [None]
  - MYALGIA [None]
